FAERS Safety Report 5831531 (Version 9)
Quarter: 2018Q4

REPORT INFORMATION
  Report Type: Spontaneous
  Country: GB (occurrence: GB)
  Receive Date: 20050520
  Receipt Date: 20181109
  Transmission Date: 20190205
  Serious: Yes (Death, Other)
  Sender: FDA-Public Use
  Company Number: GB-BRACCO-BRO-008668

PATIENT
  Age: 62 Year
  Sex: Male

DRUGS (2)
  1. PROHANCE [Suspect]
     Active Substance: GADOTERIDOL
     Indication: ANGIOGRAM
     Dosage: 10 ML, SINGLE
     Route: 042
     Dates: start: 20050427, end: 20050427
  2. VALIUM [Interacting]
     Active Substance: DIAZEPAM
     Indication: ANXIETY
     Route: 048
     Dates: start: 20050427, end: 20050427

REACTIONS (6)
  - Anaphylactic reaction [Fatal]
  - Loss of consciousness [Not Recovered/Not Resolved]
  - Circulatory collapse [Fatal]
  - Dyspnoea [Fatal]
  - Cough [Fatal]
  - Off label use [Unknown]

NARRATIVE: CASE EVENT DATE: 20050427
